FAERS Safety Report 4332650-5 (Version None)
Quarter: 2004Q1

REPORT INFORMATION
  Report Type: 
  Country: None (occurrence: None)
  Receive Date: 20040330
  Receipt Date: 20040317
  Transmission Date: 20041129
  Serious: Yes (Death, Hospitalization)
  Sender: FDA-Public Use
  Company Number: STA-AE-04-MTX-070

PATIENT
  Age: 76 Year
  Sex: Male

DRUGS (6)
  1. RHEUMATREX [Suspect]
     Indication: RHEUMATOID ARTHRITIS
     Dosage: 4 MG 1X PER 1 WK
     Dates: start: 20010426, end: 20031201
  2. RHEUMATREX [Suspect]
     Indication: RHEUMATOID ARTHRITIS
     Dosage: ORAL
     Route: 048
  3. AURANOFIN [Concomitant]
  4. PREDNISOLONE [Concomitant]
  5. INHIBACE ^ANDREU^ (CILAZAPRIL) [Concomitant]
  6. LOXONIN (LOXOPROFEN SODIUM) [Concomitant]

REACTIONS (7)
  - FUNGAL INFECTION [None]
  - HEPATIC CIRRHOSIS [None]
  - PANCYTOPENIA [None]
  - PLEURISY [None]
  - PNEUMONIA BACTERIAL [None]
  - RHEUMATOID ARTHRITIS [None]
  - SEPTIC SHOCK [None]
